FAERS Safety Report 24206415 (Version 2)
Quarter: 2024Q3

REPORT INFORMATION
  Report Type: Spontaneous
  Country: GB (occurrence: GB)
  Receive Date: 20240813
  Receipt Date: 20240821
  Transmission Date: 20241017
  Serious: Yes (Hospitalization, Other)
  Sender: ABBVIE
  Company Number: GB-ABBVIE-5875930

PATIENT
  Sex: Male

DRUGS (4)
  1. VENETOCLAX [Suspect]
     Active Substance: VENETOCLAX
     Indication: Chronic lymphocytic leukaemia recurrent
     Dosage: DOSE INCREASED
     Route: 048
  2. VENETOCLAX [Suspect]
     Active Substance: VENETOCLAX
     Indication: Chronic lymphocytic leukaemia recurrent
     Dosage: WEEK 02
     Route: 048
  3. VENETOCLAX [Suspect]
     Active Substance: VENETOCLAX
     Indication: Chronic lymphocytic leukaemia recurrent
     Dosage: WEEK 01
     Route: 048
  4. RITUXIMAB [Suspect]
     Active Substance: RITUXIMAB
     Indication: Chronic lymphocytic leukaemia refractory
     Route: 065

REACTIONS (3)
  - Lymphocyte count abnormal [Recovering/Resolving]
  - Illness [Unknown]
  - Tumour lysis syndrome [Recovered/Resolved]
